FAERS Safety Report 21397684 (Version 1)
Quarter: 2022Q3

REPORT INFORMATION
  Report Type: Spontaneous
  Country: US (occurrence: US)
  Receive Date: 20220930
  Receipt Date: 20220930
  Transmission Date: 20221027
  Serious: Yes (Life-Threatening)
  Sender: FDA-Public Use
  Company Number: US-PFIZER INC-PV202200068814

PATIENT
  Age: 34 Year
  Sex: Female

DRUGS (4)
  1. METRONIDAZOLE [Suspect]
     Active Substance: METRONIDAZOLE
     Indication: Vaginal infection
     Dosage: 250 MG, 3X/DAY
  2. LITHIUM CARBONATE [Suspect]
     Active Substance: LITHIUM CARBONATE
     Indication: Bipolar disorder
     Dosage: 1500 MG, DAILY
  3. LITHIUM CARBONATE [Suspect]
     Active Substance: LITHIUM CARBONATE
     Dosage: 900 MG(DOSE REDUCED)
  4. MOLINDONE HYDROCHLORIDE [Concomitant]
     Active Substance: MOLINDONE HYDROCHLORIDE
     Indication: Bipolar I disorder
     Dosage: 45 MG, DAILY

REACTIONS (1)
  - Nephropathy toxic [Recovering/Resolving]
